FAERS Safety Report 6240586-8 (Version None)
Quarter: 2009Q2

REPORT INFORMATION
  Report Type: 
  Country: None (occurrence: None)
  Receive Date: 20090623
  Receipt Date: 20081112
  Transmission Date: 20091009
  Serious: No
  Sender: FDA-Public Use
  Company Number: US-ASTRAZENECA-2008UW23066

PATIENT
  Age: 49 Year
  Sex: Female

DRUGS (5)
  1. PULMICORT FLEXHALER [Suspect]
     Indication: ASTHMA
     Route: 055
     Dates: start: 20080101
  2. FLECCANIDE [Concomitant]
  3. NORVASC [Concomitant]
  4. SINGULAIR [Concomitant]
  5. FLONASE [Concomitant]

REACTIONS (5)
  - ASTHMA [None]
  - CANDIDIASIS [None]
  - DYSPNOEA [None]
  - PRODUCT QUALITY ISSUE [None]
  - TOTAL LUNG CAPACITY ABNORMAL [None]
